FAERS Safety Report 16904983 (Version 1)
Quarter: 2019Q4

REPORT INFORMATION
  Report Type: Spontaneous
  Country: US (occurrence: US)
  Receive Date: 20191010
  Receipt Date: 20191010
  Transmission Date: 20200122
  Serious: Yes (Hospitalization)
  Sender: FDA-Public Use
  Company Number: None

PATIENT
  Age: 80 Year
  Sex: Male

DRUGS (8)
  1. HUMIRA [Suspect]
     Active Substance: ADALIMUMAB
     Indication: PSORIASIS
     Dosage: ?          OTHER FREQUENCY:EVERY OTHER WEEK;?
     Route: 058
     Dates: start: 20181015
  2. DIGOX [Concomitant]
     Active Substance: DIGOXIN
  3. LEVOFLOXACIN. [Concomitant]
     Active Substance: LEVOFLOXACIN
  4. ALPRAZOLAM. [Concomitant]
     Active Substance: ALPRAZOLAM
  5. BUMETANIDE. [Concomitant]
     Active Substance: BUMETANIDE
  6. NYSTOP [Concomitant]
     Active Substance: NYSTATIN
  7. METOPROL SUC [Concomitant]
  8. ELIQUIS [Concomitant]
     Active Substance: APIXABAN

REACTIONS (3)
  - Pneumonia [None]
  - Pneumonia legionella [None]
  - Immune system disorder [None]

NARRATIVE: CASE EVENT DATE: 20190924
